FAERS Safety Report 4565329-5 (Version None)
Quarter: 2005Q1

REPORT INFORMATION
  Report Type: 
  Country: None (occurrence: None)
  Receive Date: 20050127
  Receipt Date: 20050127
  Transmission Date: 20050727
  Serious: Yes (Life-Threatening, Hospitalization)
  Sender: FDA-Public Use
  Company Number: None

PATIENT
  Age: 84 Year
  Sex: Male
  Weight: 70.8 kg

DRUGS (11)
  1. HEPARIN SODIUM [Suspect]
  2. NYSTATIN [Concomitant]
  3. PHYTONADIONE [Concomitant]
  4. MULTI-VITAMINS [Concomitant]
  5. FOLIC ACID [Concomitant]
  6. DIGOXIN [Concomitant]
  7. PHYTONADIONE [Concomitant]
  8. IPRATROPIUM SOLUTION [Concomitant]
  9. ALBUTEROL [Concomitant]
  10. SIMVASTATIN [Concomitant]
  11. OMEPRAZOLE [Concomitant]

REACTIONS (1)
  - HAEMORRHAGE [None]
